FAERS Safety Report 9848844 (Version 2)
Quarter: 2014Q1

REPORT INFORMATION
  Report Type: Report from Study
  Country: US (occurrence: US)
  Receive Date: 20140128
  Receipt Date: 20140220
  Transmission Date: 20141002
  Serious: Yes (Hospitalization, Other)
  Sender: FDA-Public Use
  Company Number: US-UCBSA-110860

PATIENT
  Age: 47 Year
  Sex: Female
  Weight: 81.6 kg

DRUGS (11)
  1. CIMZIA [Suspect]
     Indication: CROHN^S DISEASE
     Route: 058
     Dates: start: 20120530
  2. CIMZIA [Suspect]
     Indication: CROHN^S DISEASE
     Route: 058
     Dates: start: 20110526, end: 20120515
  3. ENTOCORT [Concomitant]
     Indication: CROHN^S DISEASE
     Dosage: 3 MG DAILY
     Route: 048
     Dates: start: 20120915
  4. PROTONIX [Concomitant]
     Dosage: 40 MG.DAILY
     Route: 048
  5. IMURAN [Concomitant]
     Dosage: 50 MG DAILY
     Route: 048
  6. VANCOMYCIN [Concomitant]
     Dosage: 1.5 MG
     Route: 042
  7. ZOFRAN [Concomitant]
     Dosage: 4 MG. EVERY 4
     Route: 042
  8. ENALAPRIL [Concomitant]
     Dosage: 1.25MG EVERY 6 HOURS
  9. RESTORIL [Concomitant]
     Dosage: 30 MG. BEDTIME
     Route: 048
  10. LYRICA [Concomitant]
     Dosage: 50 MG. BEDTIME
     Route: 048
  11. MESALAMINE [Concomitant]
     Indication: CROHN^S DISEASE
     Dates: start: 20050829

REACTIONS (1)
  - Instillation site infection [Recovered/Resolved]
